FAERS Safety Report 6975277-9 (Version None)
Quarter: 2010Q3

REPORT INFORMATION
  Report Type: 
  Country: None (occurrence: None)
  Receive Date: 20100910
  Receipt Date: 20090226
  Transmission Date: 20110219
  Serious: No
  Sender: FDA-Public Use
  Company Number: US-WYE-H08381409

PATIENT
  Sex: Female
  Weight: 90.8 kg

DRUGS (2)
  1. PRISTIQ [Suspect]
     Indication: DEPRESSION
     Route: 048
     Dates: start: 20090217
  2. SYNTHROID [Concomitant]

REACTIONS (1)
  - REGURGITATION [None]
